FAERS Safety Report 5422657-9 (Version None)
Quarter: 2007Q3

REPORT INFORMATION
  Report Type: 
  Country: None (occurrence: None)
  Receive Date: 20070822
  Receipt Date: 20070813
  Transmission Date: 20080115
  Serious: Yes (Hospitalization)
  Sender: FDA-Public Use
  Company Number: US-ROCHE-511410

PATIENT
  Age: 53 Year

DRUGS (3)
  1. CAPECITABINE [Suspect]
     Indication: COLORECTAL CANCER
     Dosage: PER PROTOCOL PATIENTS WILL RECEIVE CAPECITABINE 750 MG/M2 BID, ORALLY, EVERY DAY ON DAYS 1 THROUGH +
     Route: 048
  2. BEVACIZUMAB [Suspect]
     Indication: COLORECTAL CANCER
     Dosage: PER PROTOCOL: FOLLOWING THE OXALIPLATIN, PATIENTS WILL RECEIVE BEVACIZUMAB 5 MG/KG IV OVER THE APPR+
     Route: 042
  3. OXALIPLATIN [Suspect]
     Indication: COLORECTAL CANCER
     Dosage: PATIENTS WILL RECEIVE OXALIPLATIN 85 MG/M2 IV OVER 120 MINUTES ON DAYS 1 AND 15.
     Route: 042

REACTIONS (3)
  - DIARRHOEA [None]
  - ENTEROCOLITIS [None]
  - GASTROENTERITIS [None]
